FAERS Safety Report 5215630-7 (Version None)
Quarter: 2007Q1

REPORT INFORMATION
  Report Type: 
  Country: None (occurrence: None)
  Receive Date: 20070123
  Receipt Date: 20070118
  Transmission Date: 20070707
  Serious: Yes (Hospitalization)
  Sender: FDA-Public Use
  Company Number: GB-ROCHE-438685

PATIENT
  Age: 67 Year
  Sex: Female

DRUGS (8)
  1. BUMETANIDE [Suspect]
     Indication: CARDIOVASCULAR DISORDER
     Route: 065
  2. BUMETANIDE [Suspect]
     Route: 065
  3. ISOSORBIDE MONONITRATE [Suspect]
     Indication: CARDIOVASCULAR DISORDER
     Route: 065
  4. ISOSORBIDE MONONITRATE [Suspect]
     Route: 065
  5. ENALAPRIL MALEATE [Suspect]
     Indication: ANGIOPATHY
     Route: 065
  6. ENALAPRIL MALEATE [Suspect]
     Route: 065
  7. BISOPROLOL FUMARATE [Suspect]
     Indication: CARDIOVASCULAR DISORDER
     Route: 065
  8. BISOPROLOL FUMARATE [Suspect]
     Route: 065

REACTIONS (5)
  - BRADYCARDIA [None]
  - DIARRHOEA [None]
  - HYPERKALAEMIA [None]
  - RENAL FAILURE ACUTE [None]
  - SHOCK [None]
